FAERS Safety Report 20917925 (Version 3)
Quarter: 2022Q2

REPORT INFORMATION
  Report Type: Spontaneous
  Country: US (occurrence: US)
  Receive Date: 20220606
  Receipt Date: 20220616
  Transmission Date: 20220721
  Serious: Yes (Hospitalization)
  Sender: FDA-Public Use
  Company Number: NVSC2022US128486

PATIENT
  Age: 71 Year
  Sex: Male

DRUGS (1)
  1. VOTRIENT [Suspect]
     Active Substance: PAZOPANIB HYDROCHLORIDE
     Indication: Lung neoplasm malignant
     Dosage: 500 MG, QD
     Route: 048
     Dates: start: 20220605

REACTIONS (9)
  - Cerebrovascular accident [Unknown]
  - Depression [Unknown]
  - Illness [Unknown]
  - Gait disturbance [Unknown]
  - Confusional state [Unknown]
  - Vomiting [Unknown]
  - Diarrhoea [Unknown]
  - Dizziness [Unknown]
  - Blood pressure increased [Unknown]

NARRATIVE: CASE EVENT DATE: 20220606
